FAERS Safety Report 9160789 (Version 3)
Quarter: 2013Q2

REPORT INFORMATION
  Report Type: Report from Study
  Country: US (occurrence: US)
  Receive Date: 20130313
  Receipt Date: 20130604
  Transmission Date: 20140414
  Serious: Yes (Death, Hospitalization, Disabling, Other)
  Sender: FDA-Public Use
  Company Number: US-BRISTOL-MYERS SQUIBB COMPANY-14053201

PATIENT
  Age: 30 Year
  Sex: Male

DRUGS (15)
  1. IPILIMUMAB [Suspect]
     Indication: MALIGNANT MELANOMA
     Dosage: DOSE:600MG
     Route: 042
     Dates: start: 20071224, end: 20080114
  2. CELEXA [Concomitant]
  3. DURAGESIC [Concomitant]
     Dosage: ALSO FENTORA BUCCAL TUBAL TABS 100 MG
  4. METRONIDAZOLE [Concomitant]
  5. SENOKOT [Concomitant]
  6. MARINOL [Concomitant]
     Route: 048
  7. PROTONIX [Concomitant]
     Route: 048
  8. MEGACE [Concomitant]
  9. XANAX [Concomitant]
     Indication: ANXIETY
     Route: 047
  10. KYTRIL [Concomitant]
  11. MIRALAX [Concomitant]
  12. NYSTATIN [Concomitant]
  13. COMPAZINE [Concomitant]
  14. LORTAB [Concomitant]
     Indication: PAIN
     Dosage: 1 DF = 5 MG 1-2 TABS Q4-6 HRS AS NECESSARY
  15. ZOLPIDEM [Concomitant]
     Indication: INSOMNIA
     Dates: start: 20080117

REACTIONS (9)
  - Malignant neoplasm progression [Fatal]
  - Pain [Recovered/Resolved]
  - Anaemia [Recovered/Resolved]
  - Oral candidiasis [Recovered/Resolved]
  - Abdominal pain [Not Recovered/Not Resolved]
  - Chills [Not Recovered/Not Resolved]
  - Dyspnoea [Not Recovered/Not Resolved]
  - Decreased appetite [Not Recovered/Not Resolved]
  - Back pain [Not Recovered/Not Resolved]
